FAERS Safety Report 14561764 (Version 1)
Quarter: 2018Q1

REPORT INFORMATION
  Report Type: Spontaneous
  Country: US (occurrence: US)
  Receive Date: 20180222
  Receipt Date: 20180222
  Transmission Date: 20180509
  Serious: Yes (Hospitalization, Other)
  Sender: FDA-Public Use
  Company Number: US-LUPIN PHARMACEUTICALS INC.-2018-01085

PATIENT
  Age: 39 Year
  Sex: Female

DRUGS (4)
  1. DIPHENHYDRAMINE. [Suspect]
     Active Substance: DIPHENHYDRAMINE
     Indication: PRODUCT USED FOR UNKNOWN INDICATION
     Dosage: 2 DF, SINGLE
     Route: 065
  2. ALPRAZOLAM. [Suspect]
     Active Substance: ALPRAZOLAM
     Indication: BACK PAIN
     Dosage: 1 MG, SINGLE
     Route: 065
  3. LORAZEPAM. [Suspect]
     Active Substance: LORAZEPAM
     Indication: BACK PAIN
     Dosage: 0.5 MG, SINGLE
     Route: 065
  4. OXYCODONE [Suspect]
     Active Substance: OXYCODONE
     Indication: BACK PAIN
     Dosage: 120 MG, SINGLE (DOUBLE HER PRESCRIBED DOSE)
     Route: 065

REACTIONS (3)
  - Prescribed overdose [Recovering/Resolving]
  - Loss of consciousness [Recovered/Resolved]
  - Compartment syndrome [Recovering/Resolving]
